FAERS Safety Report 8608609-6 (Version None)
Quarter: 2012Q3

REPORT INFORMATION
  Report Type: 
  Country: None (occurrence: None)
  Receive Date: 20120821
  Receipt Date: 20120130
  Transmission Date: 20120928
  Serious: No
  Sender: FDA-Public Use
  Company Number: US-ASTELLAS-2012US001341

PATIENT
  Age: 68 Year
  Sex: Female

DRUGS (1)
  1. AMBISOME [Suspect]
     Indication: PRODUCT USED FOR UNKNOWN INDICATION
     Dosage: UNK
     Route: 042

REACTIONS (2)
  - DEVICE OCCLUSION [None]
  - WRONG TECHNIQUE IN DRUG USAGE PROCESS [None]
